FAERS Safety Report 20067119 (Version 3)
Quarter: 2021Q4

REPORT INFORMATION
  Report Type: Spontaneous
  Country: BR (occurrence: BR)
  Receive Date: 20211115
  Receipt Date: 20211221
  Transmission Date: 20220304
  Serious: Yes (Hospitalization, Other)
  Sender: FDA-Public Use
  Company Number: BR-BIOGEN-2021BI01066938

PATIENT
  Age: 9 Month
  Sex: Female

DRUGS (1)
  1. SPINRAZA [Suspect]
     Active Substance: NUSINERSEN
     Indication: Spinal muscular atrophy
     Dosage: 1 DOSE HAS BEEN TAKEN
     Route: 037
     Dates: start: 20211029

REACTIONS (30)
  - Dyspnoea [Unknown]
  - Pneumonia aspiration [Unknown]
  - Anaemia [Unknown]
  - Thrombocytopenia [Unknown]
  - Respiratory failure [Unknown]
  - Septic shock [Unknown]
  - Cardio-respiratory arrest [Unknown]
  - Epilepsy [Unknown]
  - Brain injury [Unknown]
  - Hypoxic-ischaemic encephalopathy [Unknown]
  - Seizure [Unknown]
  - Haemodynamic instability [Unknown]
  - Gastrooesophageal reflux disease [Unknown]
  - Aspiration [Unknown]
  - Hypothermia [Unknown]
  - Oxygen saturation decreased [Unknown]
  - Hyperthermia [Unknown]
  - Agitation [Unknown]
  - Respiratory symptom [Unknown]
  - Salivary hypersecretion [Unknown]
  - Pyrexia [Unknown]
  - Heart rate increased [Unknown]
  - Respiratory rate increased [Unknown]
  - Blood pressure increased [Unknown]
  - Bradycardia [Unknown]
  - Muscle rigidity [Unknown]
  - Muscle contractions involuntary [Unknown]
  - Tachycardia [Unknown]
  - Hypertension [Unknown]
  - Nasal flaring [Unknown]

NARRATIVE: CASE EVENT DATE: 20211105
